FAERS Safety Report 7619958-2 (Version None)
Quarter: 2011Q3

REPORT INFORMATION
  Report Type: 
  Country: None (occurrence: None)
  Receive Date: 20110719
  Receipt Date: 20110706
  Transmission Date: 20111222
  Serious: Yes (Hospitalization)
  Sender: FDA-Public Use
  Company Number: JP-ELI_LILLY_AND_COMPANY-JP201107002095

PATIENT
  Age: 65 Year
  Sex: Female

DRUGS (8)
  1. PAROXETINE HCL [Concomitant]
     Dosage: UNK
     Route: 048
     Dates: start: 20060101
  2. CLONAZEPAM [Concomitant]
     Dosage: UNK
     Route: 048
     Dates: start: 20060101
  3. ZYPREXA [Suspect]
     Dosage: UNK
     Route: 048
     Dates: start: 20060101
  4. LORAZEPAM [Concomitant]
     Dosage: UNK
     Route: 048
     Dates: start: 20060101
  5. BIPERIDEN HYDROCHLORIDE TAB [Concomitant]
     Dosage: UNK
     Route: 048
     Dates: start: 20060101
  6. VALPROATE SODIUM [Concomitant]
     Dosage: UNK
     Route: 048
     Dates: start: 20060101
  7. NITRAZEPAM [Concomitant]
     Dosage: UNK
     Route: 048
     Dates: start: 20060101
  8. LEVOTHYROXINE SODIUM [Concomitant]
     Indication: HYPOTHYROIDISM
     Dosage: UNK
     Dates: start: 20090101

REACTIONS (2)
  - PNEUMONIA [None]
  - INAPPROPRIATE ANTIDIURETIC HORMONE SECRETION [None]
